FAERS Safety Report 5909819-9 (Version None)
Quarter: 2008Q4

REPORT INFORMATION
  Report Type: 
  Country: None (occurrence: None)
  Receive Date: 20081007
  Receipt Date: 20081002
  Transmission Date: 20090506
  Serious: Yes (Life-Threatening, Hospitalization, Other)
  Sender: FDA-Public Use
  Company Number: JP-BRISTOL-MYERS SQUIBB COMPANY-13141478

PATIENT
  Age: 54 Year
  Sex: Female

DRUGS (6)
  1. TAXOL [Suspect]
     Indication: OVARIAN CANCER
     Route: 042
     Dates: start: 20051004, end: 20051004
  2. PARAPLATIN [Suspect]
     Indication: OVARIAN CANCER
     Route: 042
     Dates: start: 20051004, end: 20051004
  3. DECADRON [Concomitant]
     Route: 042
     Dates: start: 20051004, end: 20051004
  4. RESTAMIN [Concomitant]
     Route: 048
     Dates: start: 20051004, end: 20051004
  5. NOVOLIN R [Concomitant]
     Route: 058
     Dates: start: 20051001, end: 20051030
  6. ZANTAC [Concomitant]
     Route: 042
     Dates: start: 20051004, end: 20051004

REACTIONS (4)
  - CARDIAC FAILURE [None]
  - PANCYTOPENIA [None]
  - PULMONARY OEDEMA [None]
  - SYSTEMIC INFLAMMATORY RESPONSE SYNDROME [None]
